FAERS Safety Report 17510408 (Version 2)
Quarter: 2020Q2

REPORT INFORMATION
  Report Type: Report from Study
  Country: JP (occurrence: JP)
  Receive Date: 20200306
  Receipt Date: 20200513
  Transmission Date: 20200713
  Serious: Yes (Other)
  Sender: FDA-Public Use
  Company Number: JP-ASTELLAS-2019JP023164

PATIENT
  Age: 76 Year
  Sex: Female
  Weight: 49 kg

DRUGS (8)
  1. ASG-22CE [Suspect]
     Active Substance: ENFORTUMAB VEDOTIN
     Dosage: 1.0 MG/KG, UNKNOWN FREQ.
     Route: 042
     Dates: start: 20191111
  2. ASG-22CE [Suspect]
     Active Substance: ENFORTUMAB VEDOTIN
     Indication: TRANSITIONAL CELL CARCINOMA
     Dosage: 1.25 MG/KG, 28 DAYS AS 1 CYCLE, INTRAVENOUS FOR 30 MINUTES ON DAY 1, 8, AND 15
     Route: 042
     Dates: start: 20190902
  3. ANTEBATE [Concomitant]
     Active Substance: BETAMETHASONE DIPROPIONATE
     Indication: RASH
     Dosage: UNK UNK, ONCE OR TWICE DAILY
     Route: 061
     Dates: start: 20190910
  4. LULICON [Concomitant]
     Active Substance: LULICONAZOLE
     Indication: RASH
     Dosage: UNK UNK, ONCE DAILY
     Route: 061
     Dates: start: 20190924
  5. PROMAC [POLAPREZINC] [Concomitant]
     Active Substance: POLAPREZINC
     Indication: GASTRITIS
     Dosage: UNK UNK, TWICE DAILY, MORNING/BEFORE BEDTIME
     Route: 048
     Dates: start: 20191007, end: 20191027
  6. PITAVASTATIN CALCIUM [Concomitant]
     Active Substance: PITAVASTATIN CALCIUM
     Indication: DYSLIPIDAEMIA
     Dosage: UNK UNK, ONCE DAILY, AFTER BREAKFAST
     Route: 048
     Dates: start: 201802
  7. AMLODIPINE [Concomitant]
     Active Substance: AMLODIPINE BESYLATE
     Indication: HYPERTENSION
     Dosage: UNK UNK, ONCE DAILY, AFTER BREAKFAST
     Route: 048
     Dates: start: 1993
  8. MAINVATE [Concomitant]
     Indication: RASH
     Dosage: UNK UNK, ONCE OR TWICE DAILY
     Route: 061
     Dates: start: 20190907

REACTIONS (1)
  - Hepatic enzyme increased [Recovered/Resolved]

NARRATIVE: CASE EVENT DATE: 20191015
